FAERS Safety Report 4331579-6 (Version None)
Quarter: 2004Q2

REPORT INFORMATION
  Report Type: 
  Country: None (occurrence: None)
  Receive Date: 20040405
  Receipt Date: 20040329
  Transmission Date: 20050107
  Serious: Yes (Disabling)
  Sender: FDA-Public Use
  Company Number: US-MERCK-0403USA02521

PATIENT
  Age: 14 Year
  Sex: Male
  Weight: 86 kg

DRUGS (2)
  1. VIOXX [Suspect]
     Indication: JOINT SPRAIN
     Route: 048
     Dates: start: 20031001, end: 20031101
  2. VIOXX [Suspect]
     Indication: PAIN
     Route: 048
     Dates: start: 20031001, end: 20031101

REACTIONS (5)
  - ASTHENIA [None]
  - EROSIVE OESOPHAGITIS [None]
  - GASTRITIS [None]
  - PRESCRIBED OVERDOSE [None]
  - WEIGHT DECREASED [None]
